FAERS Safety Report 7865073-2 (Version None)
Quarter: 2011Q4

REPORT INFORMATION
  Report Type: 
  Country: None (occurrence: None)
  Receive Date: 20111028
  Receipt Date: 20101008
  Transmission Date: 20120403
  Serious: No
  Sender: FDA-Public Use
  Company Number: US-GLAXOSMITHKLINE-A0885675A

PATIENT
  Sex: Female

DRUGS (12)
  1. MUSCLE RELAXANT [Concomitant]
  2. BENADRYL [Concomitant]
  3. LIPITOR [Concomitant]
  4. NASACORT [Concomitant]
  5. ASTELIN [Concomitant]
  6. NEURONTIN [Concomitant]
  7. ALBUTEROL [Concomitant]
  8. DIOVAN HCT [Concomitant]
  9. PRILOSEC [Suspect]
     Dosage: 40MG TWICE PER DAY
     Dates: start: 20100101
  10. PRILOSEC [Concomitant]
  11. ADVAIR DISKUS 100/50 [Suspect]
     Indication: ASTHMA
     Dosage: 1PUFF TWICE PER DAY
     Route: 055
  12. ARTHRITIS MEDICATION [Concomitant]

REACTIONS (3)
  - DRUG INEFFECTIVE [None]
  - PRODUCT QUALITY ISSUE [None]
  - WHEEZING [None]
